FAERS Safety Report 24256668 (Version 3)
Quarter: 2024Q4

REPORT INFORMATION
  Report Type: Spontaneous
  Country: US (occurrence: US)
  Receive Date: 20240828
  Receipt Date: 20241011
  Transmission Date: 20250114
  Serious: No
  Sender: APOTEX
  Company Number: US-APOTEX-2024AP009164

PATIENT
  Sex: Female

DRUGS (2)
  1. TRAVOPROST [Suspect]
     Active Substance: TRAVOPROST
     Indication: Product used for unknown indication
     Dosage: 2 GTT DROPS, Q.H.S.
     Route: 047
  2. TRAVOPROST [Suspect]
     Active Substance: TRAVOPROST
     Dosage: 2 GTT DROPS, Q.H.S.
     Route: 047
     Dates: start: 20240805

REACTIONS (5)
  - Product dose omission issue [Unknown]
  - Product packaging quantity issue [Unknown]
  - Product use issue [Unknown]
  - Product delivery mechanism issue [Unknown]
  - Extra dose administered [Unknown]
